FAERS Safety Report 10247800 (Version 2)
Quarter: 2015Q3

REPORT INFORMATION
  Report Type: Spontaneous
  Country: US (occurrence: US)
  Receive Date: 20140619
  Receipt Date: 20150719
  Transmission Date: 20151125
  Serious: Yes (Hospitalization, Other)
  Sender: FDA-Public Use
  Company Number: US-SA-2014SA077719

PATIENT
  Age: 54 Year
  Sex: Female

DRUGS (5)
  1. PLAVIX [Suspect]
     Active Substance: CLOPIDOGREL BISULFATE
     Indication: CEREBROVASCULAR ACCIDENT
     Route: 048
     Dates: start: 20040705, end: 20061115
  2. AGGRENOX [Concomitant]
     Active Substance: ASPIRIN\DIPYRIDAMOLE
     Dates: start: 20040705
  3. COUMADIN [Concomitant]
     Active Substance: WARFARIN SODIUM
  4. PLAVIX [Suspect]
     Active Substance: CLOPIDOGREL BISULFATE
     Indication: TRANSIENT ISCHAEMIC ATTACK
     Route: 048
     Dates: start: 20040705, end: 20061115
  5. ASPIRIN. [Concomitant]
     Active Substance: ASPIRIN
     Dates: start: 20040705, end: 20110907

REACTIONS (7)
  - Haemorrhage [Unknown]
  - Peripheral swelling [Unknown]
  - Muscular weakness [Unknown]
  - Pain in extremity [Unknown]
  - Multiple injuries [Unknown]
  - Ulcer haemorrhage [Unknown]
  - Tenderness [Unknown]

NARRATIVE: CASE EVENT DATE: 20061115
